FAERS Safety Report 11175580 (Version 2)
Quarter: 2015Q3

REPORT INFORMATION
  Report Type: Spontaneous
  Country: US (occurrence: US)
  Receive Date: 20150609
  Receipt Date: 20150724
  Transmission Date: 20151125
  Serious: Yes (Death, Hospitalization)
  Sender: FDA-Public Use
  Company Number: US-INCYTE CORPORATION-2015IN002632

PATIENT
  Age: 76 Year
  Sex: Male
  Weight: 78.46 kg

DRUGS (11)
  1. ALLOPURINOL. [Concomitant]
     Active Substance: ALLOPURINOL
  2. CRESTOR [Concomitant]
     Active Substance: ROSUVASTATIN CALCIUM
  3. MORPHINE [Concomitant]
     Active Substance: MORPHINE
  4. COMPAZINE [Concomitant]
     Active Substance: PROCHLORPERAZINE MALEATE
  5. FOLIC ACID. [Concomitant]
     Active Substance: FOLIC ACID
  6. LASIX [Concomitant]
     Active Substance: FUROSEMIDE
  7. TOPROL XL [Concomitant]
     Active Substance: METOPROLOL SUCCINATE
  8. JAKAFI [Suspect]
     Active Substance: RUXOLITINIB
     Indication: MYELOFIBROSIS
     Dosage: 5 MG, BID
     Route: 048
     Dates: start: 20150211, end: 20150515
  9. ARANESP [Concomitant]
     Active Substance: DARBEPOETIN ALFA
  10. SANCUSO [Concomitant]
     Active Substance: GRANISETRON
  11. DACOGEN [Concomitant]
     Active Substance: DECITABINE

REACTIONS (4)
  - Myelofibrosis [Fatal]
  - Acute leukaemia [Fatal]
  - Infection [Fatal]
  - Treatment failure [Fatal]

NARRATIVE: CASE EVENT DATE: 20150515
